FAERS Safety Report 21045403 (Version 1)
Quarter: 2022Q3

REPORT INFORMATION
  Report Type: Spontaneous
  Country: US (occurrence: None)
  Receive Date: 20220706
  Receipt Date: 20220706
  Transmission Date: 20221026
  Serious: Yes (Other)
  Sender: FDA-Public Use
  Company Number: 2022A243444

PATIENT
  Age: 24035 Day
  Sex: Female

DRUGS (1)
  1. SYMBICORT [Suspect]
     Active Substance: BUDESONIDE\FORMOTEROL FUMARATE DIHYDRATE
     Indication: Chronic obstructive pulmonary disease
     Dosage: 80/4.5MCG 2 PUFFS TWICE DAILY
     Route: 055
     Dates: start: 202202

REACTIONS (5)
  - Bronchopulmonary aspergillosis [Recovered/Resolved]
  - Secondary immunodeficiency [Not Recovered/Not Resolved]
  - Device use issue [Recovered/Resolved]
  - Product dose omission issue [Not Recovered/Not Resolved]
  - Product packaging quantity issue [Unknown]

NARRATIVE: CASE EVENT DATE: 20220630
